FAERS Safety Report 9748764 (Version 1)
Quarter: 2013Q4

REPORT INFORMATION
  Report Type: Spontaneous
  Country: GB (occurrence: None)
  Receive Date: 20131209
  Receipt Date: 20131209
  Transmission Date: 20140711
  Serious: Yes (Life-Threatening)
  Sender: FDA-Public Use
  Company Number: AUR-APL-2013-10099

PATIENT
  Age: 61 Year
  Sex: Female
  Weight: 95.7 kg

DRUGS (3)
  1. NAPROXEN (NAPROXEN) [Suspect]
     Indication: PRODUCT USED FOR UNKNOWN INDICATION
  2. CHLORPHENAMINE (CHLORPHENAMINE) [Concomitant]
  3. FLUCLOXACILLIN (FLUCLOXACILLIN) [Concomitant]

REACTIONS (3)
  - Mouth ulceration [None]
  - Mouth ulceration [None]
  - Stevens-Johnson syndrome [None]
